FAERS Safety Report 10357622 (Version 1)
Quarter: 2014Q3

REPORT INFORMATION
  Report Type: Report from Study
  Country: US (occurrence: US)
  Receive Date: 20140801
  Receipt Date: 20140801
  Transmission Date: 20150326
  Serious: Yes (Hospitalization)
  Sender: FDA-Public Use
  Company Number: US-ABBVIE-14P-163-1265668-00

PATIENT
  Age: 48 Year
  Sex: Male

DRUGS (3)
  1. UNKNOWN MEDICATION THAT STARTS WITH C [Concomitant]
     Indication: CROHN^S DISEASE
  2. HUMIRA [Suspect]
     Active Substance: ADALIMUMAB
     Indication: CROHN^S DISEASE
     Dates: start: 20140429
  3. UNKNOWN MEDICATIONS [Concomitant]
     Active Substance: UNSPECIFIED INGREDIENT
     Indication: PRODUCT USED FOR UNKNOWN INDICATION
     Dosage: IN THE MORNING AND EVENING

REACTIONS (2)
  - Cyst [Unknown]
  - Gastrointestinal infection [Recovering/Resolving]

NARRATIVE: CASE EVENT DATE: 201407
